FAERS Safety Report 24183595 (Version 1)
Quarter: 2024Q3

REPORT INFORMATION
  Report Type: Spontaneous
  Country: US (occurrence: US)
  Receive Date: 20240807
  Receipt Date: 20240807
  Transmission Date: 20241017
  Serious: Yes (Other)
  Sender: BAYER
  Company Number: US-BAYER-2024A113660

PATIENT
  Age: 49 Year
  Sex: Female

DRUGS (1)
  1. ACETAMINOPHEN\GUAIFENESIN [Suspect]
     Active Substance: ACETAMINOPHEN\GUAIFENESIN
     Indication: Feeling cold
     Dosage: 1 DF, TID
     Dates: start: 20240806, end: 20240806

REACTIONS (1)
  - Sneezing [Recovered/Resolved]

NARRATIVE: CASE EVENT DATE: 20240806
